FAERS Safety Report 21211373 (Version 1)
Quarter: 2022Q3

REPORT INFORMATION
  Report Type: Other
  Country: GB (occurrence: GB)
  Receive Date: 20220815
  Receipt Date: 20220815
  Transmission Date: 20221027
  Serious: Yes (Hospitalization, Other)
  Sender: FDA-Public Use
  Company Number: GB-CELLTRION INC.-2022GB012850

PATIENT

DRUGS (4)
  1. INFLIXIMAB [Suspect]
     Active Substance: INFLIXIMAB
     Indication: Product used for unknown indication
     Dosage: STRENGTH: 1 MG
  2. INFLIXIMAB [Suspect]
     Active Substance: INFLIXIMAB
     Dosage: UNK
     Dates: start: 201608
  3. INFLIXIMAB [Suspect]
     Active Substance: INFLIXIMAB
     Dosage: UNK
     Route: 042
  4. MAGNESIUM GLYCEROPHOSPHATE [Suspect]
     Active Substance: MAGNESIUM GLYCEROPHOSPHATE
     Indication: Blood magnesium decreased
     Dosage: 2 TABLETS 3 TIMES A DAY FOR 1 MONTH

REACTIONS (10)
  - Cardiac disorder [Unknown]
  - Symptom recurrence [Unknown]
  - Blood magnesium decreased [Unknown]
  - Abdominal discomfort [Unknown]
  - Cholelithiasis [Unknown]
  - Trigger finger [Unknown]
  - Fatigue [Unknown]
  - Weight decreased [Unknown]
  - Arthralgia [Unknown]
  - Diarrhoea [Recovered/Resolved]

NARRATIVE: CASE EVENT DATE: 20220601
